FAERS Safety Report 7718516-9 (Version None)
Quarter: 2011Q3

REPORT INFORMATION
  Report Type: 
  Country: None (occurrence: None)
  Receive Date: 20110830
  Receipt Date: 20110829
  Transmission Date: 20111222
  Serious: No
  Sender: FDA-Public Use
  Company Number: US-PFIZER INC-2011201221

PATIENT
  Sex: Male
  Weight: 84.8 kg

DRUGS (3)
  1. NEXIUM [Concomitant]
     Dosage: 40 MG, 1X/DAY
  2. DEPO-TESTOSTERONE [Suspect]
     Indication: HYPOGONADISM
     Dosage: UNK
     Route: 030
     Dates: start: 20110422
  3. ANDROGEL [Concomitant]
     Dosage: UNK, 1X/DAY

REACTIONS (2)
  - EXPIRED DRUG ADMINISTERED [None]
  - BLOOD TESTOSTERONE DECREASED [None]
